FAERS Safety Report 14926717 (Version 1)
Quarter: 2018Q2

REPORT INFORMATION
  Report Type: Spontaneous
  Country: FR (occurrence: FR)
  Receive Date: 20180523
  Receipt Date: 20180523
  Transmission Date: 20180711
  Serious: Yes (Other)
  Sender: FDA-Public Use
  Company Number: FR-TEVA-2018-FR-895188

PATIENT
  Age: 47 Year
  Sex: Female
  Weight: 93.6 kg

DRUGS (6)
  1. BILASKA [Suspect]
     Active Substance: BILASTINE
     Indication: PRODUCT USED FOR UNKNOWN INDICATION
     Route: 048
     Dates: start: 201508
  2. NOCERTONE [Suspect]
     Active Substance: OXETORONE
     Indication: HEADACHE
     Route: 048
     Dates: start: 201507
  3. SEROPLEX [Suspect]
     Active Substance: ESCITALOPRAM OXALATE
     Indication: DEPRESSION
     Route: 048
  4. SIMPONI [Suspect]
     Active Substance: GOLIMUMAB
     Indication: ANKYLOSING SPONDYLITIS
     Route: 058
     Dates: start: 201508, end: 201711
  5. SERESTA [Suspect]
     Active Substance: OXAZEPAM
     Indication: DEPRESSION
     Route: 048
  6. TRAMADOL (CHLORHYDRATE DE) [Suspect]
     Active Substance: TRAMADOL HYDROCHLORIDE
     Indication: PAIN
     Route: 048
     Dates: start: 201505

REACTIONS (1)
  - Hepatocellular injury [Recovering/Resolving]

NARRATIVE: CASE EVENT DATE: 20170821
